FAERS Safety Report 24339311 (Version 1)
Quarter: 2024Q3

REPORT INFORMATION
  Report Type: Spontaneous
  Country: RU (occurrence: RU)
  Receive Date: 20240919
  Receipt Date: 20240919
  Transmission Date: 20241016
  Serious: Yes (Other)
  Sender: KOWA PHARM
  Company Number: RU-RECORDATI-2024007091

PATIENT

DRUGS (3)
  1. PITAVASTATIN CALCIUM [Suspect]
     Active Substance: PITAVASTATIN CALCIUM
     Indication: Hypercholesterolaemia
     Dosage: 2 MILLIGRAM, QD
     Dates: start: 202309, end: 202311
  2. TEMGICOLURIL [Concomitant]
     Active Substance: TEMGICOLURIL
     Indication: Neurosis
     Dosage: 500 MG, (1 DOSAGE FORM) BID
     Route: 048
     Dates: start: 2023
  3. PHEZAM [Concomitant]
     Indication: Product used for unknown indication
     Dosage: 1 DOSAGE FORM, TID (1 CAP 3 TIMES PER DAY)
     Route: 048

REACTIONS (1)
  - Drug-induced liver injury [Recovered/Resolved]

NARRATIVE: CASE EVENT DATE: 20230101
